FAERS Safety Report 22082875 (Version 1)
Quarter: 2023Q1

REPORT INFORMATION
  Report Type: Spontaneous
  Country: ES (occurrence: None)
  Receive Date: 20230310
  Receipt Date: 20230310
  Transmission Date: 20230417
  Serious: Yes (Life-Threatening, Hospitalization, Other)
  Sender: FDA-Public Use
  Company Number: ES-MICRO LABS LIMITED-ML2023-01282

PATIENT
  Age: 57 Year
  Sex: Female

DRUGS (1)
  1. VERAPAMIL HYDROCHLORIDE [Suspect]
     Active Substance: VERAPAMIL HYDROCHLORIDE
     Indication: Hypertension

REACTIONS (6)
  - Erythema [Unknown]
  - Asthenia [Unknown]
  - Hypotension [Unknown]
  - Bradycardia [Unknown]
  - Hyperhidrosis [Unknown]
  - Labelled drug-food interaction issue [Unknown]
